FAERS Safety Report 4289340-7 (Version None)
Quarter: 2004Q1

REPORT INFORMATION
  Report Type: 
  Country: None (occurrence: None)
  Receive Date: 20040210
  Receipt Date: 20020927
  Transmission Date: 20041129
  Serious: Yes (Hospitalization, Disabling)
  Sender: FDA-Public Use
  Company Number: PHBS2002AU11819

PATIENT
  Age: 63 Year
  Sex: Female

DRUGS (3)
  1. ZELMAC [Suspect]
     Indication: IRRITABLE BOWEL SYNDROME
     Dosage: 6 MG, BID
     Route: 048
     Dates: start: 20020701, end: 20021001
  2. ZOTON [Concomitant]
  3. ALLOPURINOL [Concomitant]

REACTIONS (4)
  - DIVERTICULITIS [None]
  - HEADACHE [None]
  - RECTAL HAEMORRHAGE [None]
  - VOMITING [None]
